FAERS Safety Report 10086258 (Version 3)
Quarter: 2014Q2

REPORT INFORMATION
  Report Type: Spontaneous
  Country: IT (occurrence: IT)
  Receive Date: 20140418
  Receipt Date: 20140626
  Transmission Date: 20141212
  Serious: Yes (Hospitalization)
  Sender: FDA-Public Use
  Company Number: IT-SA-2014SA044963

PATIENT
  Age: 69 Year
  Sex: Male

DRUGS (9)
  1. CLEXANE [Suspect]
     Indication: THROMBOSIS PROPHYLAXIS
     Route: 058
     Dates: start: 20130913, end: 201312
  2. VEMURAFENIB [Suspect]
     Indication: METASTATIC MALIGNANT MELANOMA
     Route: 048
     Dates: start: 20130913, end: 20131107
  3. PLACEBO [Suspect]
     Indication: METASTATIC MALIGNANT MELANOMA
     Route: 048
     Dates: start: 20130913, end: 20131107
  4. PLACEBO [Suspect]
     Indication: METASTATIC MALIGNANT MELANOMA
     Route: 048
     Dates: start: 20131106, end: 20131113
  5. COUMADIN [Concomitant]
     Indication: THROMBOSIS
     Route: 048
     Dates: start: 2011, end: 20130913
  6. OXYCONTIN [Concomitant]
     Indication: PAIN
     Route: 048
     Dates: start: 20130823, end: 20131002
  7. HYDROCORTISONE [Concomitant]
     Indication: RASH
     Route: 061
     Dates: start: 20130927
  8. MYCOSTATIN [Concomitant]
     Indication: MUCOSAL INFLAMMATION
     Route: 061
     Dates: start: 20131108
  9. AMOXICILLIN SODIUM/CLAVULANATE POTASSIUM [Concomitant]
     Indication: PYREXIA
     Route: 048
     Dates: start: 20131104, end: 20131108

REACTIONS (1)
  - Anaemia [Not Recovered/Not Resolved]
